FAERS Safety Report 17127559 (Version 1)
Quarter: 2019Q4

REPORT INFORMATION
  Report Type: Report from Study
  Country: ES (occurrence: ES)
  Receive Date: 20191209
  Receipt Date: 20191209
  Transmission Date: 20200122
  Serious: Yes (Death, Hospitalization)
  Sender: FDA-Public Use
  Company Number: ES-ACCORD-164534

PATIENT
  Age: 83 Year
  Sex: Female

DRUGS (6)
  1. SEPTRIN FORTE [Suspect]
     Active Substance: SULFAMETHOXAZOLE\TRIMETHOPRIM
     Indication: ANTIBIOTIC PROPHYLAXIS
     Dosage: 1 TABLET EVERY 12 HOURS SATURDAY AND SUNDAY (160 MG / 800 MG)(20 TABLETS)
     Route: 048
     Dates: start: 20190411, end: 20190522
  2. ALLOPURINOL. [Suspect]
     Active Substance: ALLOPURINOL
     Indication: PLASMA CELL MYELOMA
     Dosage: 300 MG A DAY
     Route: 048
     Dates: start: 20190411, end: 20190522
  3. LENALIDOMIDE [Suspect]
     Active Substance: LENALIDOMIDE
     Indication: PLASMA CELL MYELOMA
     Dosage: 25 MG / 24H OF THE 1 TO DAY 21 OF EACH CYCLE
     Route: 048
     Dates: start: 20190411, end: 20190522
  4. ONDANSETRON [Concomitant]
     Active Substance: ONDANSETRON
     Route: 048
     Dates: start: 20190424, end: 20190522
  5. DEXAMETHASONE. [Concomitant]
     Active Substance: DEXAMETHASONE
     Indication: PLASMA CELL MYELOMA
     Dosage: DAYS 1,8,15 AND 22 OF EACH CYCLE
     Route: 048
     Dates: start: 20190411, end: 20190522
  6. METOCLOPRAMIDE. [Concomitant]
     Active Substance: METOCLOPRAMIDE
     Route: 048
     Dates: start: 20190424, end: 20190522

REACTIONS (1)
  - Drug reaction with eosinophilia and systemic symptoms [Fatal]

NARRATIVE: CASE EVENT DATE: 20190426
